FAERS Safety Report 23973940 (Version 2)
Quarter: 2024Q2

REPORT INFORMATION
  Report Type: Report from Study
  Country: US (occurrence: US)
  Receive Date: 20240613
  Receipt Date: 20240626
  Transmission Date: 20240716
  Serious: Yes (Other)
  Sender: FDA-Public Use
  Company Number: US-ABBVIE-5795981

PATIENT
  Age: 47 Year
  Sex: Male
  Weight: 105 kg

DRUGS (6)
  1. HUMIRA [Suspect]
     Active Substance: ADALIMUMAB
     Indication: Colitis ulcerative
     Route: 058
     Dates: start: 20170112, end: 2021
  2. VITAMIN B12 [Concomitant]
     Active Substance: CYANOCOBALAMIN
     Indication: Vitamin supplementation
     Route: 030
     Dates: start: 20200210
  3. VITAMIN D [Concomitant]
     Active Substance: VITAMIN D NOS
     Indication: Osteopenia
     Route: 048
     Dates: start: 2018
  4. NEXIUM [Concomitant]
     Active Substance: ESOMEPRAZOLE MAGNESIUM
     Indication: Antacid therapy
     Dosage: TIME INTERVAL: 0.33333333 DAYS
     Route: 048
     Dates: start: 20231116
  5. NEXIUM [Concomitant]
     Active Substance: ESOMEPRAZOLE MAGNESIUM
     Indication: Antacid therapy
     Route: 048
     Dates: start: 2016, end: 20220104
  6. PREVACID [Concomitant]
     Active Substance: LANSOPRAZOLE
     Indication: Hyperchlorhydria
     Route: 048
     Dates: start: 2010, end: 20220104

REACTIONS (1)
  - Cataract subcapsular [Recovered/Resolved]

NARRATIVE: CASE EVENT DATE: 20210101
